FAERS Safety Report 4663021-X (Version None)
Quarter: 2005Q2

REPORT INFORMATION
  Report Type: 
  Country: None (occurrence: None)
  Receive Date: 20050513
  Receipt Date: 20050427
  Transmission Date: 20051028
  Serious: Yes (Death)
  Sender: FDA-Public Use
  Company Number: DSA_26363_2005

PATIENT
  Age: 91 Year
  Sex: Female

DRUGS (13)
  1. TEVETEN [Suspect]
     Indication: HYPERTENSION
     Dosage: 600 MG Q DAY PO
     Route: 048
     Dates: start: 20031006, end: 20040901
  2. NITRO-DUR [Concomitant]
  3. WARFARIN SODIUM [Concomitant]
  4. METFORMIN [Concomitant]
  5. GLYBURIDE [Concomitant]
  6. PRANDASE [Concomitant]
  7. LASIX [Concomitant]
  8. FERROUS GLUCONATE [Concomitant]
  9. ATENOLOL [Concomitant]
  10. NORVASC [Concomitant]
  11. ALDACTONE [Concomitant]
  12. LIPITOR [Concomitant]
  13. ASPIRIN [Concomitant]

REACTIONS (1)
  - DIABETIC COMPLICATION [None]
